FAERS Safety Report 7162372-7 (Version None)
Quarter: 2010Q4

REPORT INFORMATION
  Report Type: 
  Country: None (occurrence: None)
  Receive Date: 20101215
  Receipt Date: 20091023
  Transmission Date: 20110411
  Serious: Yes (Life-Threatening, Hospitalization)
  Sender: FDA-Public Use
  Company Number: DE-PFIZER INC-2009270441

PATIENT
  Age: 72 Year
  Sex: Female

DRUGS (6)
  1. VALORON [Suspect]
     Indication: PAIN
     Dosage: 100 MG/8 MG TWICE DAILY
     Route: 048
     Dates: start: 20090619
  2. LYRICA [Suspect]
     Indication: PAIN
     Dosage: 25 MG (MORNING) + 75 MG (EVENING)/DAY
     Route: 048
     Dates: start: 20090619
  3. SEROQUEL [Concomitant]
     Indication: SCHIZOPHRENIA
     Dosage: 37.5 MG (1X0.5 DF+1X1 DF)
     Route: 048
  4. MELPERONE [Concomitant]
     Indication: SCHIZOPHRENIA
     Dosage: 12.5 MG (HALF OF 25 MG) /DAY
     Route: 048
  5. CARBIDOPA + LEVODOPA [Concomitant]
     Dosage: 25 MG/100 MG
     Route: 048
  6. NORTRIPTYLINE HCL [Concomitant]
     Dosage: 10 MG, 2X/DAY
     Route: 048

REACTIONS (4)
  - MIOSIS [None]
  - OVERDOSE [None]
  - RESPIRATORY FAILURE [None]
  - SOMNOLENCE [None]
